FAERS Safety Report 9301623 (Version 1)
Quarter: 2012Q4

REPORT INFORMATION
  Report Type: Spontaneous
  Country: FR (occurrence: None)
  Receive Date: 20121109
  Receipt Date: 20121109
  Transmission Date: 20130627
  Serious: Yes (Death, Other)
  Sender: FDA-Public Use
  Company Number: 2011S1000739

PATIENT
  Age: 62 Year
  Sex: Female
  Weight: 52 kg

DRUGS (6)
  1. CUBICIN (DAPTOMYCIN) [Suspect]
     Indication: CARDIAC INFECTION
  2. CUBICIN (DAPTOMYCIN) [Suspect]
     Indication: ENDOCARDITIS
  3. GENTAMICIN [Concomitant]
  4. RIFAMPICIN [Concomitant]
  5. ERYTHROMYCIN [Concomitant]
  6. CEFOTAXIME [Concomitant]

REACTIONS (11)
  - Cardiac failure [None]
  - Staphylococcus test positive [None]
  - Acute lung injury [None]
  - Acute respiratory distress syndrome [None]
  - Lactic acidosis [None]
  - Hypotension [None]
  - Body temperature increased [None]
  - Body temperature decreased [None]
  - Hyperventilation [None]
  - White blood cell count decreased [None]
  - White blood cell count increased [None]
